FAERS Safety Report 6865947-5 (Version None)
Quarter: 2010Q3

REPORT INFORMATION
  Report Type: 
  Country: None (occurrence: None)
  Receive Date: 20100719
  Receipt Date: 20100706
  Transmission Date: 20110219
  Serious: Yes (Other)
  Sender: FDA-Public Use
  Company Number: UKP10000081

PATIENT
  Sex: Female

DRUGS (1)
  1. ACTOKIT (RISEDRONATE SODIUM 35 MG, CALCIUM CARBONATE 1250 MG) TABLET, [Suspect]
     Dosage: 1 TABLET, CYCLIC 1/D, ORAL
     Route: 048

REACTIONS (3)
  - BONE GRAFT [None]
  - GRAFT COMPLICATION [None]
  - IMPAIRED HEALING [None]
